FAERS Safety Report 10003830 (Version 2)
Quarter: 2014Q1

REPORT INFORMATION
  Report Type: Report from Study
  Country: US (occurrence: US)
  Receive Date: 20140312
  Receipt Date: 20140312
  Transmission Date: 20141002
  Serious: Yes (Other)
  Sender: FDA-Public Use
  Company Number: US-ABBVIE-14P-163-1208067-00

PATIENT
  Age: 72 Year
  Sex: Female

DRUGS (7)
  1. HUMIRA [Suspect]
     Indication: RHEUMATOID ARTHRITIS
     Dates: start: 2003, end: 20140225
  2. TRAMADOL [Concomitant]
     Indication: ARTHRALGIA
  3. PREDNISONE [Concomitant]
     Indication: RHEUMATOID ARTHRITIS
  4. ROPINIROLE [Concomitant]
     Indication: MUSCLE SPASMS
     Dosage: AT BEDTIME
  5. METHOCARBAMOL [Concomitant]
     Indication: MUSCLE SPASMS
  6. CALCIUM [Concomitant]
     Indication: PRODUCT USED FOR UNKNOWN INDICATION
     Dosage: DAILY
  7. ACTONEL [Concomitant]
     Indication: OSTEOPOROSIS

REACTIONS (3)
  - Mycobacterium tuberculosis complex test positive [Not Recovered/Not Resolved]
  - Headache [Not Recovered/Not Resolved]
  - Chest discomfort [Not Recovered/Not Resolved]
